FAERS Safety Report 4917804-9 (Version None)
Quarter: 2006Q1

REPORT INFORMATION
  Report Type: 
  Country: None (occurrence: None)
  Receive Date: 20060214
  Receipt Date: 20060131
  Transmission Date: 20060701
  Serious: Yes (Hospitalization)
  Sender: FDA-Public Use
  Company Number: 2006RR-01565

PATIENT
  Age: 60 Year
  Sex: Male
  Weight: 70 kg

DRUGS (5)
  1. IBUPROFEN [Suspect]
     Indication: BACK PAIN
     Dosage: 400 MG, TID, ORAL
     Route: 048
     Dates: start: 20051230, end: 20060105
  2. OMEPRAZOLE [Concomitant]
  3. MS CONTIN [Concomitant]
  4. GABAPENTIN (GABAPENTIN) CAPSULE [Concomitant]
  5. DIAZPAM TABLETS (DIAZEPAM) TABLET [Concomitant]

REACTIONS (1)
  - RENAL FAILURE ACUTE [None]
